FAERS Safety Report 10388815 (Version 1)
Quarter: 2014Q1

REPORT INFORMATION
  Report Type: Spontaneous
  Country: US (occurrence: None)
  Receive Date: 20140306
  Receipt Date: 20140306
  Transmission Date: 20141002
  Serious: Yes (Hospitalization)
  Sender: FDA-Public Use
  Company Number: 163-21880-13104737

PATIENT
  Age: 68 Year
  Sex: Male

DRUGS (14)
  1. REVLIMID (LENALIDOMIDE) (25 MILLIGRAM, CAPSULES) [Suspect]
     Indication: PLASMA CELL MYELOMA
     Dosage: 25 MG, 14 IN 21 D, PO
     Route: 048
     Dates: start: 201308, end: 201310
  2. ASA (ACETYLSALICYLIC ACID) [Concomitant]
  3. BIDIL [Concomitant]
  4. COREG (CARVEDILOL) [Concomitant]
  5. DEXAMETHASONE [Concomitant]
  6. LISINOPRIL [Concomitant]
  7. NEXIUM (ESOMEPRAZOLE) [Concomitant]
  8. TIKOSYN (DOFETILIDE) [Concomitant]
  9. VALTREX (VALACICLOVIR HYDROCHLORIDE) [Concomitant]
  10. DEMADEX (TORASEMIDE) [Concomitant]
  11. IMDUR (ISOSORBIDE MONONITRATE) [Concomitant]
  12. ELIQUIS (APIXABAN) [Concomitant]
  13. UBIQUINOL [Concomitant]
  14. METOPROLOL [Concomitant]

REACTIONS (1)
  - Cellulitis [None]
